FAERS Safety Report 8474840-6 (Version None)
Quarter: 2012Q2

REPORT INFORMATION
  Report Type: 
  Country: None (occurrence: None)
  Receive Date: 20120628
  Receipt Date: 20120625
  Transmission Date: 20120825
  Serious: Yes (Hospitalization)
  Sender: FDA-Public Use
  Company Number: JP-BRISTOL-MYERS SQUIBB COMPANY-16643348

PATIENT

DRUGS (2)
  1. ALIMTA [Suspect]
  2. PARAPLATIN AQ [Suspect]

REACTIONS (1)
  - DYSPHONIA [None]
